FAERS Safety Report 25037779 (Version 1)
Quarter: 2025Q1

REPORT INFORMATION
  Report Type: Spontaneous
  Country: US (occurrence: US)
  Receive Date: 20250304
  Receipt Date: 20250304
  Transmission Date: 20250409
  Serious: No
  Sender: INCYTE
  Company Number: US-EVENT-001774

PATIENT
  Age: 56 Year

DRUGS (1)
  1. OPZELURA [Suspect]
     Active Substance: RUXOLITINIB PHOSPHATE
     Indication: Dermatitis atopic
     Dosage: APPLY A THIN LAYER (0.5 GRAMS) TO AFFECTED AREA(S) TWICE DAILY AS DIRECTED)

REACTIONS (1)
  - Drug ineffective [Unknown]
